FAERS Safety Report 25607773 (Version 1)
Quarter: 2025Q3

REPORT INFORMATION
  Report Type: Spontaneous
  Country: BR (occurrence: BR)
  Receive Date: 20250725
  Receipt Date: 20250725
  Transmission Date: 20251020
  Serious: Yes (Other)
  Sender: DAIICHI
  Company Number: BR-DSJP-DSE-2024-110588

PATIENT
  Age: 65 Year
  Sex: Male

DRUGS (1)
  1. ENHERTU [Suspect]
     Active Substance: FAM-TRASTUZUMAB DERUXTECAN-NXKI
     Indication: Product used for unknown indication
     Route: 065

REACTIONS (7)
  - Metastases to central nervous system [Unknown]
  - Metastases to meninges [Unknown]
  - Toxicity to various agents [Unknown]
  - Alopecia [Unknown]
  - Fatigue [Unknown]
  - Neuropathy peripheral [Unknown]
  - Blood bilirubin increased [Unknown]
